FAERS Safety Report 19536984 (Version 2)
Quarter: 2021Q3

REPORT INFORMATION
  Report Type: Spontaneous
  Country: IN (occurrence: IN)
  Receive Date: 20210713
  Receipt Date: 20210726
  Transmission Date: 20211014
  Serious: Yes (Other)
  Sender: FDA-Public Use
  Company Number: IN-ACCORD-230826

PATIENT
  Age: 45 Year
  Sex: Female
  Weight: 72 kg

DRUGS (1)
  1. METHOTREXATE. [Suspect]
     Active Substance: METHOTREXATE
     Indication: RHEUMATOID ARTHRITIS
     Dosage: 15 MG WEEKLY
     Route: 048

REACTIONS (1)
  - Rheumatoid lung [Recovered/Resolved]
